FAERS Safety Report 4704081-7 (Version None)
Quarter: 2005Q2

REPORT INFORMATION
  Report Type: 
  Country: None (occurrence: None)
  Receive Date: 20050630
  Receipt Date: 20050621
  Transmission Date: 20051028
  Serious: Yes (Other)
  Sender: FDA-Public Use
  Company Number: IE-BRISTOL-MYERS SQUIBB COMPANY-13010269

PATIENT
  Age: 20 Year
  Sex: Male

DRUGS (3)
  1. ABILIFY [Suspect]
     Indication: PSYCHOTIC DISORDER
     Dates: start: 20020101
  2. CLOZARIL [Interacting]
     Indication: PSYCHOTIC DISORDER
     Route: 048
     Dates: start: 20050405, end: 20050421
  3. OLANZAPINE [Interacting]
     Indication: PSYCHOTIC DISORDER
     Route: 048
     Dates: start: 20020901

REACTIONS (2)
  - DRUG INTERACTION [None]
  - ERYTHEMA MULTIFORME [None]
